FAERS Safety Report 4706187-5 (Version None)
Quarter: 2005Q2

REPORT INFORMATION
  Report Type: 
  Country: None (occurrence: None)
  Receive Date: 20050629
  Receipt Date: 20050523
  Transmission Date: 20051028
  Serious: Yes (Death)
  Sender: FDA-Public Use
  Company Number: 05P-163-0301183-00

PATIENT
  Age: 64 Year
  Sex: Male

DRUGS (4)
  1. HUMIRA [Suspect]
     Indication: RHEUMATOID ARTHRITIS
     Dosage: 40 MG, 1 IN 2 WK, SUBCUTANEOUS
     Route: 058
     Dates: start: 20040909, end: 20050101
  2. HYDROXYCLOROQUINE PHOSPHATE [Concomitant]
  3. PANTOPRAZOLE [Concomitant]
  4. PREDNISONE TAB [Concomitant]

REACTIONS (1)
  - SEPSIS [None]
